FAERS Safety Report 9004806 (Version 1)
Quarter: 2013Q1

REPORT INFORMATION
  Report Type: Spontaneous
  Country: US (occurrence: None)
  Receive Date: 20130107
  Receipt Date: 20130107
  Transmission Date: 20140127
  Serious: No
  Sender: FDA-Public Use
  Company Number: None

PATIENT
  Age: 49 Year
  Sex: Female
  Weight: 70 kg

DRUGS (1)
  1. INCIVEK [Suspect]
     Indication: HEPATITIS C
     Dosage: 2 TABLETS EVERY 8 HOURS, ORAL
     Route: 048
     Dates: start: 20120911, end: 20121212

REACTIONS (3)
  - Pruritus [None]
  - Rash [None]
  - Irritability [None]
